FAERS Safety Report 13493363 (Version 1)
Quarter: 2017Q2

REPORT INFORMATION
  Report Type: Spontaneous
  Country: US (occurrence: US)
  Receive Date: 20170427
  Receipt Date: 20170427
  Transmission Date: 20170830
  Serious: No
  Sender: FDA-Public Use
  Company Number: US-ROCHE-CID000000002222105

PATIENT
  Age: 69 Year
  Sex: Male

DRUGS (10)
  1. FLAXSEED [Concomitant]
     Active Substance: FLAX SEED
  2. ERIVEDGE [Suspect]
     Active Substance: VISMODEGIB
     Indication: PRODUCT USED FOR UNKNOWN INDICATION
     Route: 048
     Dates: start: 201205
  3. FISH OIL [Concomitant]
     Active Substance: FISH OIL
  4. MELATONIN [Concomitant]
     Active Substance: MELATONIN
     Route: 065
  5. ADVIL [Concomitant]
     Active Substance: IBUPROFEN
     Route: 065
  6. VITAMIN E [Concomitant]
     Active Substance: .ALPHA.-TOCOPHEROL
     Dosage: 400
     Route: 065
  7. BENZONATATE. [Concomitant]
     Active Substance: BENZONATATE
     Route: 065
  8. VITAMIN B12 [Concomitant]
     Active Substance: CYANOCOBALAMIN
     Route: 065
  9. VERAPAMIL ER [Concomitant]
     Active Substance: VERAPAMIL HYDROCHLORIDE
     Route: 065
  10. VITAMIN C TIMED RELEASE [Concomitant]
     Route: 065

REACTIONS (11)
  - Gastritis [Unknown]
  - Oesophageal dilatation [Unknown]
  - Ageusia [Unknown]
  - Decreased appetite [Unknown]
  - Rhinorrhoea [Unknown]
  - Productive cough [Unknown]
  - Oesophageal disorder [Unknown]
  - Weight decreased [Unknown]
  - Alopecia [Unknown]
  - Flatulence [Unknown]
  - Dysphagia [Unknown]

NARRATIVE: CASE EVENT DATE: 20121101
